FAERS Safety Report 12647007 (Version 1)
Quarter: 2016Q3

REPORT INFORMATION
  Report Type: Spontaneous
  Country: FR (occurrence: FR)
  Receive Date: 20160812
  Receipt Date: 20160812
  Transmission Date: 20161109
  Serious: Yes (Other)
  Sender: FDA-Public Use
  Company Number: FR-ACCORD-043102

PATIENT
  Age: 54 Year
  Sex: Male

DRUGS (8)
  1. INNOHEP 0.5 [Concomitant]
     Route: 058
  2. GEMCITABINE ACCORD [Suspect]
     Active Substance: GEMCITABINE HYDROCHLORIDE
     Indication: CHOLANGIOCARCINOMA
     Dosage: ONE DOSAGE FORM IN A SINGLE DOSE??ALSO RECEIVED 08-JUL-2016 + 22-JUL-2016 AS GEMOX PROTOCO
     Route: 042
     Dates: start: 20160502
  3. KEPPRA 500 [Concomitant]
     Dosage: ONE DOSAGE FORM IN THE MORNING AND THEN TWO DOSAGE FORMS IN THE EVENING
     Route: 048
  4. SPASFON 80 [Concomitant]
     Route: 048
  5. DELURSAN [Concomitant]
     Active Substance: URSODIOL
     Dosage: ONE DOSAGE FORM IN THE MORNING
     Route: 048
  6. ACTISKENAN [Concomitant]
     Active Substance: MORPHINE SULFATE
     Dosage: INTERDOSE OF 5 MG IF NEEDED
  7. SKENAN L.P. [Concomitant]
     Dosage: NE DOSAGE FORM IN THE MORNING AND ANOTHER IN THE EVENING
     Route: 048
  8. OXALIPLATIN HOSPIRA [Suspect]
     Active Substance: OXALIPLATIN
     Indication: CHOLANGIOCARCINOMA
     Dosage: ONE DOSAGE FORM IN A SINGLE DOSE
     Route: 042
     Dates: start: 20160502

REACTIONS (2)
  - Haematotoxicity [Unknown]
  - Epilepsy [Recovered/Resolved]

NARRATIVE: CASE EVENT DATE: 20160502
